FAERS Safety Report 23656461 (Version 1)
Quarter: 2024Q1

REPORT INFORMATION
  Report Type: Spontaneous
  Country: US (occurrence: US)
  Receive Date: 20240321
  Receipt Date: 20240321
  Transmission Date: 20240409
  Serious: Yes (Other)
  Sender: FDA-Public Use
  Company Number: None

PATIENT
  Age: 80 Year
  Sex: Male

DRUGS (2)
  1. OLANZAPINE [Suspect]
     Active Substance: OLANZAPINE
     Indication: Bipolar disorder
     Dosage: AT BEDTIME
  2. OLANZAPINE [Suspect]
     Active Substance: OLANZAPINE
     Dosage: AT BEDTIME

REACTIONS (1)
  - Catatonia [Recovering/Resolving]
